FAERS Safety Report 13562749 (Version 1)
Quarter: 2017Q2

REPORT INFORMATION
  Report Type: Spontaneous
  Country: US (occurrence: US)
  Receive Date: 20170518
  Receipt Date: 20170518
  Transmission Date: 20170830
  Serious: Yes (Hospitalization)
  Sender: FDA-Public Use
  Company Number: None

PATIENT
  Age: 70 Year
  Sex: Male

DRUGS (2)
  1. NIVOLUMAB [Suspect]
     Active Substance: NIVOLUMAB
     Indication: LUNG NEOPLASM MALIGNANT
     Dosage: FREQUENCY - OTHER
     Route: 042
     Dates: start: 20160914, end: 20170228
  2. NIVOLUMAB [Suspect]
     Active Substance: NIVOLUMAB
     Indication: ATRIAL FIBRILLATION
     Dosage: FREQUENCY - OTHER
     Route: 042
     Dates: start: 20160914, end: 20170228

REACTIONS (2)
  - Thyroiditis [None]
  - Hyperthyroidism [None]

NARRATIVE: CASE EVENT DATE: 20170418
